FAERS Safety Report 5618881-2 (Version None)
Quarter: 2008Q1

REPORT INFORMATION
  Report Type: 
  Country: None (occurrence: None)
  Receive Date: 20080205
  Receipt Date: 20071227
  Transmission Date: 20080703
  Serious: Yes (Hospitalization)
  Sender: FDA-Public Use
  Company Number: 2007S1013825

PATIENT
  Age: 38 Year
  Sex: Female

DRUGS (7)
  1. ETOPOSIDE [Suspect]
     Indication: BREAST CANCER METASTATIC
     Dosage: 100 MG; DAILY;
     Dates: start: 20071206
  2. IRINOTECAN [Suspect]
     Indication: BREAST CANCER METASTATIC
     Dosage: 200 MG;X1;INTRAVENOUS
     Route: 042
     Dates: start: 20071205
  3. PROZAC /00724401/ (CON.) [Concomitant]
  4. LEVOGLUTAMIDE (CON.) [Concomitant]
  5. LYRICA (CON.) [Concomitant]
  6. ACIPHEX (CON.) [Concomitant]
  7. OXYCODONE HCL (CON.) [Concomitant]

REACTIONS (3)
  - PLEURAL EFFUSION [None]
  - PRODUCTIVE COUGH [None]
  - RESPIRATORY DISTRESS [None]
